FAERS Safety Report 8302497-3 (Version None)
Quarter: 2012Q2

REPORT INFORMATION
  Report Type: 
  Country: None (occurrence: None)
  Receive Date: 20120404
  Receipt Date: 20120323
  Transmission Date: 20120825
  Serious: Yes (Hospitalization)
  Sender: FDA-Public Use
  Company Number: 2012031759

PATIENT
  Age: 32 Year
  Sex: Male

DRUGS (10)
  1. PRIVIGEN [Suspect]
     Indication: PLASMAPHERESIS
     Dosage: INTRAVENOUS (NOT OTHERWISE SPECIFIED)
     Route: 042
     Dates: start: 20120204
  2. PRIVIGEN [Suspect]
     Indication: PLASMAPHERESIS
     Dosage: INTRAVENOUS (NOT OTHERWISE SPECIFIED)
     Route: 042
     Dates: start: 20120209
  3. PRIVIGEN [Suspect]
     Indication: PLASMAPHERESIS
     Dosage: INTRAVENOUS (NOT OTHERWISE SPECIFIED)
     Route: 042
     Dates: start: 20120208
  4. PRIVIGEN [Suspect]
     Indication: PLASMAPHERESIS
     Dosage: INTRAVENOUS (NOT OTHERWISE SPECIFIED)
     Route: 042
     Dates: start: 20120130
  5. PRIVIGEN [Suspect]
     Indication: PLASMAPHERESIS
     Dosage: INTRAVENOUS (NOT OTHERWISE SPECIFIED)
     Route: 042
     Dates: start: 20120203
  6. IMMUNE GLOBULIN (HUMAN) [Suspect]
     Indication: PLASMAPHERESIS
     Dosage: INTRAVENOUS (NOT OTHERWISE SPECIFIED)
     Route: 042
     Dates: start: 20120216
  7. IMMUNE GLOBULIN (HUMAN) [Suspect]
     Indication: PLASMAPHERESIS
     Dosage: INTRAVENOUS (NOT OTHERWISE SPECIFIED)
     Route: 042
     Dates: start: 20120218
  8. IMMUNE GLOBULIN (HUMAN) [Suspect]
     Indication: PLASMAPHERESIS
     Dosage: INTRAVENOUS (NOT OTHERWISE SPECIFIED)
     Route: 042
     Dates: start: 20120131
  9. IMMUNE GLOBULIN (HUMAN) [Suspect]
     Indication: PLASMAPHERESIS
     Dosage: INTRAVENOUS (NOT OTHERWISE SPECIFIED)
     Route: 042
     Dates: start: 20120217
  10. IMMUNE GLOBULIN (HUMAN) [Suspect]
     Indication: PLASMAPHERESIS
     Dosage: INTRAVENOUS (NOT OTHERWISE SPECIFIED)
     Route: 042
     Dates: start: 20120215

REACTIONS (6)
  - PANCYTOPENIA [None]
  - NEUTROPENIA [None]
  - HYPOFIBRINOGENAEMIA [None]
  - PLASMAPHERESIS [None]
  - LYMPHOPENIA [None]
  - OFF LABEL USE [None]
